FAERS Safety Report 15958668 (Version 1)
Quarter: 2019Q1

REPORT INFORMATION
  Report Type: Spontaneous
  Country: US (occurrence: US)
  Receive Date: 20190213
  Receipt Date: 20190213
  Transmission Date: 20190417
  Serious: No
  Sender: FDA-Public Use
  Company Number: US-PURDUE-USA-2018-0144550

PATIENT
  Age: 70 Year
  Sex: Female

DRUGS (1)
  1. BUPRENORPHINE TRANSDERMAL PATCH (SIMILAR TO NDA 21-306) [Suspect]
     Active Substance: BUPRENORPHINE
     Indication: SPINAL OPERATION
     Dosage: 20 MCG/HR, WEEKLY
     Route: 062
     Dates: start: 201712

REACTIONS (9)
  - Fall [Recovered/Resolved]
  - Insomnia [Not Recovered/Not Resolved]
  - Faecal volume increased [Unknown]
  - Application site erythema [Not Recovered/Not Resolved]
  - Somnolence [Not Recovered/Not Resolved]
  - Drug effect increased [Unknown]
  - Disorientation [Not Recovered/Not Resolved]
  - Sleep disorder [Not Recovered/Not Resolved]
  - Application site pruritus [Not Recovered/Not Resolved]

NARRATIVE: CASE EVENT DATE: 201712
